FAERS Safety Report 20383292 (Version 2)
Quarter: 2022Q1

REPORT INFORMATION
  Report Type: Spontaneous
  Country: US (occurrence: US)
  Receive Date: 20220127
  Receipt Date: 20220302
  Transmission Date: 20220424
  Serious: Yes (Hospitalization, Other)
  Sender: FDA-Public Use
  Company Number: US-BoehringerIngelheim-2022-BI-150500

PATIENT
  Age: 83 Year
  Sex: Male

DRUGS (2)
  1. DABIGATRAN [Suspect]
     Active Substance: DABIGATRAN
     Indication: Atrial fibrillation
     Route: 048
  2. COLCHICINE [Suspect]
     Active Substance: COLCHICINE
     Indication: Gout

REACTIONS (2)
  - Ischaemic stroke [Recovering/Resolving]
  - Faeces discoloured [Unknown]
